FAERS Safety Report 8200563-4 (Version None)
Quarter: 2012Q1

REPORT INFORMATION
  Report Type: 
  Country: None (occurrence: None)
  Receive Date: 20120312
  Receipt Date: 20120307
  Transmission Date: 20120608
  Serious: Yes (Hospitalization, Disabling)
  Sender: FDA-Public Use
  Company Number: CA-BAYER-2012-022379

PATIENT
  Age: 28 Year
  Sex: Female
  Weight: 73 kg

DRUGS (1)
  1. CIPRO [Suspect]
     Dosage: 500 MG, BID
     Route: 048

REACTIONS (6)
  - ARTHRALGIA [None]
  - INSOMNIA [None]
  - MUSCLE TIGHTNESS [None]
  - TACHYCARDIA [None]
  - ARTHROPATHY [None]
  - MYALGIA [None]
